FAERS Safety Report 8963973 (Version 2)
Quarter: 2013Q1

REPORT INFORMATION
  Report Type: Spontaneous
  Country: US (occurrence: US)
  Receive Date: 20121214
  Receipt Date: 20130130
  Transmission Date: 20140127
  Serious: Yes (Other)
  Sender: FDA-Public Use
  Company Number: US-AMGEN-USASP2012079906

PATIENT
  Age: 64 Year
  Sex: Female
  Weight: 91.16 kg

DRUGS (10)
  1. PROLIA [Suspect]
     Indication: OSTEOPOROSIS POSTMENOPAUSAL
     Dosage: 60 MG, ONE TIME DOSE
     Route: 058
     Dates: start: 20120806
  2. CALCIUM [Concomitant]
     Dosage: 100 MG, BID
     Route: 048
  3. CYMBALTA [Concomitant]
  4. HYDRODIURIL [Concomitant]
  5. LOPRESSOR [Concomitant]
     Dosage: 50 MG, BID
     Route: 048
  6. NEURONTIN [Concomitant]
  7. NORCO [Concomitant]
  8. LEVOTHYROXINE [Concomitant]
     Dosage: 150 MUG, QD
  9. VITAMIN D                          /00318501/ [Concomitant]
     Dosage: 100 MG, BID
     Route: 048
  10. SYNTHROID [Concomitant]
     Dosage: 150 MG, QD
     Route: 048

REACTIONS (1)
  - Osteonecrosis of jaw [Not Recovered/Not Resolved]
